FAERS Safety Report 5726993-8 (Version None)
Quarter: 2008Q2

REPORT INFORMATION
  Report Type: 
  Country: None (occurrence: None)
  Receive Date: 20080505
  Receipt Date: 20080424
  Transmission Date: 20081010
  Serious: Yes (Hospitalization)
  Sender: FDA-Public Use
  Company Number: ES-ELI_LILLY_AND_COMPANY-ES200804006122

PATIENT
  Age: 73 Year
  Sex: Female

DRUGS (4)
  1. ZYPREXA [Suspect]
     Dosage: 15 MG, DAILY (1/D)
     Route: 065
  2. BIPERIDEN HYDROCHLORIDE TAB [Concomitant]
     Dosage: 1 MG, DAILY (1/D)
     Route: 065
  3. ESCITALOPRAM OXALATE [Concomitant]
     Dosage: 20 MG, DAILY (1/D)
     Route: 065
  4. DIHYDROERGOCRISTINE [Concomitant]
     Dosage: 8 ML, 2/D
     Route: 065

REACTIONS (1)
  - LICHENOID KERATOSIS [None]
